FAERS Safety Report 6890870-X (Version None)
Quarter: 2010Q3

REPORT INFORMATION
  Report Type: 
  Country: None (occurrence: None)
  Receive Date: 20100731
  Receipt Date: 20090402
  Transmission Date: 20110219
  Serious: No
  Sender: FDA-Public Use
  Company Number: US-PFIZER INC-2008152049

PATIENT
  Sex: Male
  Weight: 81.646 kg

DRUGS (4)
  1. LIPITOR [Suspect]
     Indication: BLOOD CHOLESTEROL INCREASED
     Dosage: 10 MG, 1X/DAY
     Route: 048
  2. LORAZEPAM [Concomitant]
  3. BUSPAR [Concomitant]
  4. SERTRALINE HYDROCHLORIDE [Concomitant]
     Indication: ANXIETY

REACTIONS (1)
  - WRONG TECHNIQUE IN DRUG USAGE PROCESS [None]
